FAERS Safety Report 6372527-7 (Version None)
Quarter: 2009Q3

REPORT INFORMATION
  Report Type: 
  Country: None (occurrence: None)
  Receive Date: 20090924
  Receipt Date: 20080911
  Transmission Date: 20100115
  Serious: Yes (Hospitalization)
  Sender: FDA-Public Use
  Company Number: US-ASTRAZENECA-2008UW18909

PATIENT
  Age: 42 Year
  Sex: Male
  Weight: 102.1 kg

DRUGS (4)
  1. SEROQUEL [Suspect]
     Indication: BIPOLAR DISORDER
     Route: 048
  2. SOMA [Concomitant]
  3. CELEXA [Concomitant]
  4. TYLENOL W/ CODEINE [Concomitant]

REACTIONS (1)
  - INTENTIONAL OVERDOSE [None]
